FAERS Safety Report 18959326 (Version 1)
Quarter: 2021Q1

REPORT INFORMATION
  Report Type: Spontaneous
  Country: US (occurrence: US)
  Receive Date: 20210302
  Receipt Date: 20210302
  Transmission Date: 20210420
  Serious: Yes (Other)
  Sender: FDA-Public Use
  Company Number: US-PFIZER INC-2020181582

PATIENT
  Age: 85 Year
  Sex: Male
  Weight: 89.81 kg

DRUGS (15)
  1. FINASTERIDE. [Concomitant]
     Active Substance: FINASTERIDE
     Dosage: 5 MG, DAILY
     Dates: start: 201504
  2. TIOTROPIUM [Concomitant]
     Active Substance: TIOTROPIUM
     Dosage: UNK, DAILY; (18 MG INHALATION CAPSULE 1 VIAL DAILY)
     Dates: start: 201203
  3. VYNDAMAX [Suspect]
     Active Substance: TAFAMIDIS
     Indication: CARDIAC AMYLOIDOSIS
  4. TIMOLOL. [Concomitant]
     Active Substance: TIMOLOL
     Dosage: 1 DROP, 2X/DAY; (1 DROP EVERY 12 HOURS )
     Dates: start: 201504
  5. BUMETANIDE. [Concomitant]
     Active Substance: BUMETANIDE
     Dosage: 2 MG, 2X/DAY (EVERY 12 HOURS)
     Dates: start: 201703
  6. SPIRONOLACTONE. [Concomitant]
     Active Substance: SPIRONOLACTONE
     Dosage: 12.5 MG, DAILY (1/2 TABLET?DAILY)
     Route: 048
     Dates: start: 201604
  7. VYNDAMAX [Suspect]
     Active Substance: TAFAMIDIS
     Indication: CARDIAC DISORDER
     Dosage: 61 MG, 1X/DAY
     Dates: start: 201912
  8. APIXABAN [Concomitant]
     Active Substance: APIXABAN
     Dosage: 5 MG, 2X/DAY(2 TIMES DAILY)
     Dates: start: 201809
  9. FERROUS SULFATE. [Concomitant]
     Active Substance: FERROUS SULFATE
     Dosage: 325 MG, DAILY
     Dates: start: 201504
  10. M MOMETASONE [Concomitant]
     Dosage: UNK, 2X/DAY; (0.1% OINTMENT BOTH LOWER LEGS TWICE DAILY )
     Dates: start: 201606
  11. ALBUTEROL SULFATE. [Concomitant]
     Active Substance: ALBUTEROL SULFATE
     Dosage: 90 UG
     Dates: start: 20190331
  12. DOXYCYCLINE. [Concomitant]
     Active Substance: DOXYCYCLINE
     Dosage: 100 MG, 2X/DAY(TWICE DAILY)
     Dates: start: 201403
  13. LATANOPROST. [Concomitant]
     Active Substance: LATANOPROST
     Dosage: 1 DROP, 1X/DAY; (LANTANOPROST 0.005%  OPHTHALMIC SOLUTION 1 DROP AT 9 PM)
     Dates: start: 201504
  14. SENNOSIDES DOCUSATE SODIUM [Concomitant]
     Dosage: 1 DF, 2X/DAY
     Dates: start: 201504
  15. ATORVASTATIN [Concomitant]
     Active Substance: ATORVASTATIN
     Dosage: 40 MG, DAILY
     Dates: start: 201506

REACTIONS (1)
  - Atrial fibrillation [Unknown]
